FAERS Safety Report 9132502 (Version 1)
Quarter: 2013Q1

REPORT INFORMATION
  Report Type: Spontaneous
  Country: FI (occurrence: FI)
  Receive Date: 20130301
  Receipt Date: 20130301
  Transmission Date: 20140127
  Serious: Yes (Other)
  Sender: FDA-Public Use
  Company Number: FI-VIIV HEALTHCARE LIMITED-B0870294A

PATIENT
  Age: 18 Month
  Sex: 0

DRUGS (3)
  1. EPIVIR [Suspect]
     Indication: EXPOSURE TO COMMUNICABLE DISEASE
     Route: 065
  2. RETROVIR [Suspect]
     Indication: EXPOSURE TO COMMUNICABLE DISEASE
     Route: 065
  3. COMBIVIR [Suspect]
     Indication: HIV INFECTION
     Route: 064

REACTIONS (3)
  - Essential thrombocythaemia [Unknown]
  - Thrombocytosis [Unknown]
  - Foetal exposure during pregnancy [Unknown]
